FAERS Safety Report 12748574 (Version 1)
Quarter: 2016Q3

REPORT INFORMATION
  Report Type: Report from Study
  Country: CA (occurrence: CA)
  Receive Date: 20160915
  Receipt Date: 20160915
  Transmission Date: 20161109
  Serious: Yes (Hospitalization)
  Sender: FDA-Public Use
  Company Number: CA-TAKEDA-2016TUS016017

PATIENT
  Age: 49 Year
  Sex: Male

DRUGS (9)
  1. SIMPONI [Concomitant]
     Active Substance: GOLIMUMAB
     Dosage: 100 MG, MONTHLY
     Dates: start: 2015, end: 201608
  2. VEDOLIZUMAB [Suspect]
     Active Substance: VEDOLIZUMAB
     Indication: CROHN^S DISEASE
     Dosage: 300 MG, UNK
     Route: 042
     Dates: start: 20160826, end: 20160826
  3. CLONAZEPAM. [Concomitant]
     Active Substance: CLONAZEPAM
     Dosage: 2 MG, TID
     Dates: start: 1998
  4. DEXILANT [Suspect]
     Active Substance: DEXLANSOPRAZOLE
     Indication: GASTROOESOPHAGEAL REFLUX DISEASE
     Dosage: 60 MG, UNK
     Route: 065
     Dates: start: 2014
  5. CARBOLITH [Concomitant]
     Active Substance: LITHIUM CARBONATE
     Dosage: 300 MG, UNK
     Dates: start: 2009
  6. RIVOTRIL [Concomitant]
     Active Substance: CLONAZEPAM
     Dosage: 2 MG, TID
  7. PERPHENAZINE. [Concomitant]
     Active Substance: PERPHENAZINE
     Dosage: 16 MG, UNK
     Dates: start: 2012
  8. PREDNISONE. [Concomitant]
     Active Substance: PREDNISONE
     Dosage: 45 MG, UNK
  9. FERROUS SULFATE. [Concomitant]
     Active Substance: FERROUS SULFATE
     Dosage: 300 MG, BID
     Dates: start: 2015

REACTIONS (1)
  - Crohn^s disease [Unknown]
